FAERS Safety Report 24066920 (Version 1)
Quarter: 2024Q3

REPORT INFORMATION
  Report Type: Spontaneous
  Country: US (occurrence: US)
  Receive Date: 20240709
  Receipt Date: 20240709
  Transmission Date: 20241016
  Serious: No
  Sender: KARYOPHARM THERAPEUTICS
  Company Number: US-KARYOPHARM-2024KPT001254

PATIENT

DRUGS (10)
  1. XPOVIO [Suspect]
     Active Substance: SELINEXOR
     Indication: Plasma cell myeloma
     Dosage: 60 MG, WEEKLY, EVERY 7 DAYS
     Route: 048
     Dates: start: 20240627
  2. ACYCLOVIR [Concomitant]
     Active Substance: ACYCLOVIR
  3. MAGOX [Concomitant]
  4. DARZALEX [Concomitant]
     Active Substance: DARATUMUMAB
  5. DEXAMETHASONE [Concomitant]
     Active Substance: DEXAMETHASONE
  6. KLOR-CON M10 [Concomitant]
     Active Substance: POTASSIUM CHLORIDE
  7. METFORMIN HYDROCHLORIDE [Concomitant]
     Active Substance: METFORMIN HYDROCHLORIDE
  8. PROCHLORPERAZINE [Concomitant]
     Active Substance: PROCHLORPERAZINE
  9. VELCADE [Concomitant]
     Active Substance: BORTEZOMIB
  10. ZOFRAN [Concomitant]
     Active Substance: ONDANSETRON HYDROCHLORIDE

REACTIONS (1)
  - Diarrhoea [Recovered/Resolved]

NARRATIVE: CASE EVENT DATE: 20240627
